FAERS Safety Report 20814938 (Version 2)
Quarter: 2022Q2

REPORT INFORMATION
  Report Type: Spontaneous
  Country: US (occurrence: US)
  Receive Date: 20220511
  Receipt Date: 20220519
  Transmission Date: 20220721
  Serious: Yes (Other)
  Sender: FDA-Public Use
  Company Number: US-MYLANLABS-2022M1034538

PATIENT
  Age: 77 Year
  Sex: Male

DRUGS (9)
  1. OCTREOTIDE [Suspect]
     Active Substance: OCTREOTIDE
     Indication: Gastroenteritis radiation
     Dosage: UNK
     Route: 042
  2. OCTREOTIDE [Suspect]
     Active Substance: OCTREOTIDE
     Indication: Short-bowel syndrome
  3. OCTREOTIDE [Suspect]
     Active Substance: OCTREOTIDE
     Indication: Diarrhoea
  4. CHOLESTYRAMINE [Suspect]
     Active Substance: CHOLESTYRAMINE
     Indication: Gastroenteritis radiation
     Dosage: UNK
     Route: 065
  5. CHOLESTYRAMINE [Suspect]
     Active Substance: CHOLESTYRAMINE
     Indication: Short-bowel syndrome
  6. CHOLESTYRAMINE [Suspect]
     Active Substance: CHOLESTYRAMINE
     Indication: Diarrhoea
  7. TEDUGLUTIDE [Suspect]
     Active Substance: TEDUGLUTIDE
     Indication: Gastroenteritis radiation
     Dosage: UNK
     Route: 065
  8. TEDUGLUTIDE [Suspect]
     Active Substance: TEDUGLUTIDE
     Indication: Short-bowel syndrome
  9. TEDUGLUTIDE [Suspect]
     Active Substance: TEDUGLUTIDE
     Indication: Diarrhoea

REACTIONS (2)
  - Drug ineffective for unapproved indication [Unknown]
  - Off label use [Unknown]
